FAERS Safety Report 9749175 (Version 1)
Quarter: 2013Q4

REPORT INFORMATION
  Report Type: Spontaneous
  Country: US (occurrence: US)
  Receive Date: 20131212
  Receipt Date: 20131212
  Transmission Date: 20140711
  Serious: Yes (Other)
  Sender: FDA-Public Use
  Company Number: US-INCYTE CORPORATION-2013IN002522

PATIENT
  Age: 60 Year
  Sex: Male

DRUGS (7)
  1. JAKAFI [Suspect]
     Indication: MYELOFIBROSIS
     Dosage: 5 MG, BID
     Route: 048
     Dates: end: 20131018
  2. AMLODIPINE [Concomitant]
  3. WARFARIN [Concomitant]
  4. ACYCLOVIR [Concomitant]
  5. PENICILLIN [Concomitant]
  6. ALLOPURINOL [Concomitant]
  7. MULTIVITAMINS [Concomitant]

REACTIONS (1)
  - Platelet count decreased [Unknown]
